FAERS Safety Report 11227750 (Version 1)
Quarter: 2015Q2

REPORT INFORMATION
  Report Type: Spontaneous
  Country: US (occurrence: US)
  Receive Date: 20150630
  Receipt Date: 20150630
  Transmission Date: 20150821
  Serious: No
  Sender: FDA-Public Use
  Company Number: US-BIOGENIDEC-2015BI089488

PATIENT
  Sex: Female

DRUGS (1)
  1. TECFIDERA [Suspect]
     Active Substance: DIMETHYL FUMARATE
     Indication: MULTIPLE SCLEROSIS

REACTIONS (10)
  - Mobility decreased [Unknown]
  - Major depression [Unknown]
  - Feeding disorder [Unknown]
  - Fatigue [Unknown]
  - Abdominal distension [Unknown]
  - Asthenia [Unknown]
  - Hypersomnia [Unknown]
  - Headache [Unknown]
  - Flushing [Unknown]
  - Sensory disturbance [Unknown]
